FAERS Safety Report 8564407-3 (Version None)
Quarter: 2012Q3

REPORT INFORMATION
  Report Type: 
  Country: None (occurrence: None)
  Receive Date: 20120803
  Receipt Date: 20120724
  Transmission Date: 20120928
  Serious: Yes (Death, Other)
  Sender: FDA-Public Use
  Company Number: JP-JNJFOC-20120703979

PATIENT
  Age: 31 Year
  Sex: Male

DRUGS (4)
  1. ABILIFY [Suspect]
     Indication: SCHIZOPHRENIA
     Route: 048
     Dates: start: 20120623, end: 20120702
  2. RISPERDAL [Suspect]
     Indication: SCHIZOPHRENIA
     Route: 048
     Dates: start: 20120629, end: 20120702
  3. RISPERDAL [Suspect]
     Route: 048
     Dates: start: 20120604, end: 20120629
  4. HALOPERIDOL [Suspect]
     Indication: SCHIZOPHRENIA
     Route: 048
     Dates: start: 20120601, end: 20120702

REACTIONS (4)
  - EOSINOPHILIC PNEUMONIA [None]
  - NEUROLEPTIC MALIGNANT SYNDROME [None]
  - HAEMORRHAGE [None]
  - INTERSTITIAL LUNG DISEASE [None]
